FAERS Safety Report 9431746 (Version 1)
Quarter: 2013Q3

REPORT INFORMATION
  Report Type: Spontaneous
  Country: IT (occurrence: IT)
  Receive Date: 20130731
  Receipt Date: 20130731
  Transmission Date: 20140515
  Serious: Yes (Hospitalization)
  Sender: FDA-Public Use
  Company Number: IT-AMGEN-ITASP2013052723

PATIENT
  Age: 70 Year
  Sex: Female
  Weight: 72 kg

DRUGS (1)
  1. VECTIBIX [Suspect]
     Indication: COLON CANCER
     Dosage: 400 MG, CYCLICAL
     Route: 042
     Dates: start: 20130605, end: 20130605

REACTIONS (1)
  - Venous thrombosis limb [Not Recovered/Not Resolved]
